FAERS Safety Report 8255602-1 (Version None)
Quarter: 2012Q2

REPORT INFORMATION
  Report Type: 
  Country: None (occurrence: None)
  Receive Date: 20120403
  Receipt Date: 20120320
  Transmission Date: 20120825
  Serious: Yes (Hospitalization)
  Sender: FDA-Public Use
  Company Number: PHHO2012JP004575

PATIENT
  Age: 68 Year
  Sex: Male
  Weight: 61.678 kg

DRUGS (13)
  1. AXITINIB [Suspect]
     Indication: METASTATIC RENAL CELL CARCINOMA
     Dosage: 5 MG, BID
     Route: 048
     Dates: start: 20110114, end: 20110921
  2. DIOVAN [Concomitant]
     Dosage: UNK
     Dates: start: 20111001
  3. TRICHLORMETHIAZIDE [Concomitant]
     Dosage: UNK
     Dates: start: 20110810
  4. LORCAM [Concomitant]
     Dosage: UNK
  5. MAGNESIUM SULFATE [Concomitant]
     Dosage: UNK
     Dates: start: 20110922
  6. AXITINIB [Suspect]
     Dosage: 3 MG, BID
     Route: 048
     Dates: start: 20110925, end: 20120217
  7. TRAMADOL HYDROCHLORIDE [Concomitant]
     Dosage: UNK
  8. LANSOPRAZOLE [Concomitant]
     Dosage: UNK
     Dates: start: 20110127
  9. HIRUDOID [Concomitant]
     Dosage: UNK
     Dates: start: 20110120
  10. CEFAZOLIN SODIUM [Concomitant]
     Dosage: UNK
     Dates: start: 20111020
  11. ZOMETA [Suspect]
     Dosage: 4 MG, QMO
     Dates: start: 20110101, end: 20110810
  12. AMLODIPINE [Concomitant]
     Dosage: UNK
     Dates: start: 20111001
  13. LEVOFLOXACIN [Concomitant]
     Dosage: UNK
     Dates: start: 20120209, end: 20120216

REACTIONS (2)
  - GINGIVITIS [None]
  - OSTEOMYELITIS [None]
